FAERS Safety Report 9918108 (Version 2)
Quarter: 2014Q1

REPORT INFORMATION
  Report Type: Spontaneous
  Country: US (occurrence: US)
  Receive Date: 20140223
  Receipt Date: 20140223
  Transmission Date: 20141002
  Serious: No
  Sender: FDA-Public Use
  Company Number: US-ALLERGAN-1303348US

PATIENT
  Age: 56 Year
  Sex: Female

DRUGS (3)
  1. TAZORAC CREAM 0.1% [Suspect]
     Indication: ACNE
     Dosage: UNK UNK, QHS
     Route: 061
     Dates: start: 2012
  2. ACTONEL [Concomitant]
     Indication: PRODUCT USED FOR UNKNOWN INDICATION
     Dosage: UNK UNK, Q WEEK
     Route: 048
  3. VITAMINS NOS [Concomitant]
     Indication: VITAMIN SUPPLEMENTATION
     Dosage: UNK

REACTIONS (3)
  - Skin burning sensation [Not Recovered/Not Resolved]
  - Chemical burn of skin [Not Recovered/Not Resolved]
  - Skin exfoliation [Not Recovered/Not Resolved]
